FAERS Safety Report 18676775 (Version 11)
Quarter: 2023Q2

REPORT INFORMATION
  Report Type: Spontaneous
  Country: IT (occurrence: IT)
  Receive Date: 20201229
  Receipt Date: 20230517
  Transmission Date: 20230722
  Serious: Yes (Hospitalization, Other)
  Sender: FDA-Public Use
  Company Number: IT-SA-2020SA340925

PATIENT
  Age: 72 Year
  Sex: Male

DRUGS (11)
  1. LENALIDOMIDE [Suspect]
     Active Substance: LENALIDOMIDE
     Indication: Plasma cell myeloma
     Dosage: 5MG,QD,DAYS 1-21 IN 28-DAYS CYCLE
     Route: 048
     Dates: start: 201911
  2. LENALIDOMIDE [Suspect]
     Active Substance: LENALIDOMIDE
     Indication: Metastases to bone
  3. PREDNISONE [Suspect]
     Active Substance: PREDNISONE
     Indication: Plasma cell myeloma
     Dosage: REDUCED DOSE FOR COMORBIDITIES , 0.8 MG/KG, QD
     Route: 065
  4. PREDNISONE [Suspect]
     Active Substance: PREDNISONE
     Indication: Drug reaction with eosinophilia and systemic symptoms
     Dosage: TAPERED TO 0.6 MG/KG AFTER 1 WEEK
     Route: 065
  5. PREDNISONE [Suspect]
     Active Substance: PREDNISONE
     Dosage: 25 MILLIGRAM, QD
     Route: 065
  6. CYCLOPHOSPHAMIDE [Suspect]
     Active Substance: CYCLOPHOSPHAMIDE
     Indication: Plasma cell myeloma
     Dosage: 300 MILLIGRAM, QW
     Route: 048
  7. METHYLPREDNISOLONE [Suspect]
     Active Substance: METHYLPREDNISOLONE
     Indication: Drug reaction with eosinophilia and systemic symptoms
     Dosage: 50 GRAM, QD (0.8 MG/KG)
     Route: 048
  8. METHYLPREDNISOLONE [Suspect]
     Active Substance: METHYLPREDNISOLONE
     Dosage: 37.5 MILLIGRAM, QD (0.6 MG/KG)
     Route: 048
  9. HUMAN IMMUNOGLOBULIN G [Concomitant]
     Active Substance: HUMAN IMMUNOGLOBULIN G
     Indication: Drug reaction with eosinophilia and systemic symptoms
     Dosage: 1 GRAM PER KILOGRAM
     Route: 042
  10. LEVOFLOXACIN [Concomitant]
     Active Substance: LEVOFLOXACIN
     Indication: Drug reaction with eosinophilia and systemic symptoms
     Dosage: UNK
     Route: 065
  11. LENALIDOMIDE [Concomitant]
     Active Substance: LENALIDOMIDE
     Indication: Metastases to bone
     Dosage: UNK
     Route: 065

REACTIONS (15)
  - Skin lesion inflammation [Unknown]
  - Herpes virus infection [Recovered/Resolved]
  - Drug reaction with eosinophilia and systemic symptoms [Unknown]
  - Leukopenia [Unknown]
  - Leukocytosis [Unknown]
  - Pyrexia [Unknown]
  - Eosinophilia [Unknown]
  - Syncope [Unknown]
  - Liver injury [Unknown]
  - Rash papular [Unknown]
  - Human herpesvirus 6 infection reactivation [Recovered/Resolved]
  - Rash [Unknown]
  - Rebound effect [Unknown]
  - Drug abuse [Unknown]
  - Drug ineffective [Unknown]
